FAERS Safety Report 25686376 (Version 1)
Quarter: 2025Q3

REPORT INFORMATION
  Report Type: Other
  Country: CN (occurrence: CN)
  Receive Date: 20250815
  Receipt Date: 20250815
  Transmission Date: 20251020
  Serious: Yes (Hospitalization)
  Sender: XCOVERY HOLDINGS
  Company Number: CN-XCO-202500081

PATIENT
  Age: 74 Year
  Sex: Male
  Weight: 55 kg

DRUGS (1)
  1. ENSARTINIB HYDROCHLORIDE [Suspect]
     Active Substance: ENSARTINIB HYDROCHLORIDE
     Indication: Lung neoplasm malignant
     Route: 048
     Dates: start: 20250701, end: 20250715

REACTIONS (3)
  - Rash [Recovered/Resolved]
  - Skin infection [Recovered/Resolved]
  - Product use issue [Unknown]

NARRATIVE: CASE EVENT DATE: 20250711
